FAERS Safety Report 20586767 (Version 2)
Quarter: 2022Q2

REPORT INFORMATION
  Report Type: Spontaneous
  Country: US (occurrence: US)
  Receive Date: 20220313
  Receipt Date: 20220609
  Transmission Date: 20220721
  Serious: No
  Sender: FDA-Public Use
  Company Number: US-drreddys-SPO/USA/22/0147458

PATIENT
  Sex: Female

DRUGS (1)
  1. BUPRENORPHINE\NALOXONE [Suspect]
     Active Substance: BUPRENORPHINE\NALOXONE
     Indication: Product used for unknown indication

REACTIONS (9)
  - Influenza like illness [Unknown]
  - Arthralgia [Unknown]
  - Poor quality sleep [Unknown]
  - Pain in extremity [Unknown]
  - Medial tibial stress syndrome [Unknown]
  - Abnormal dreams [Unknown]
  - Drug dependence [Unknown]
  - Abdominal discomfort [Unknown]
  - Product quality issue [Unknown]
